FAERS Safety Report 16376840 (Version 1)
Quarter: 2019Q3

REPORT INFORMATION
  Report Type: Spontaneous
  Country: US (occurrence: US)
  Receive Date: 20190530
  Receipt Date: 20190530
  Transmission Date: 20191004
  Serious: Yes (Hospitalization, Other)
  Sender: FDA-Public Use
  Company Number: None

PATIENT
  Age: 78 Year
  Sex: Female
  Weight: 74.57 kg

DRUGS (15)
  1. BENEFIBER [Concomitant]
     Active Substance: STARCH, WHEAT
  2. MIRALAX [Concomitant]
     Active Substance: POLYETHYLENE GLYCOL 3350
  3. CITALOPRAM [Concomitant]
     Active Substance: CITALOPRAM HYDROBROMIDE
  4. RANITIDINE HCL [Concomitant]
     Active Substance: RANITIDINE HYDROCHLORIDE
  5. ALENDRONATE SODIUM. [Concomitant]
     Active Substance: ALENDRONATE SODIUM
  6. CLARITIN [Concomitant]
     Active Substance: LORATADINE
  7. LORAZEPAM. [Concomitant]
     Active Substance: LORAZEPAM
  8. AMOXICILLIN. [Concomitant]
     Active Substance: AMOXICILLIN
  9. MECLIZINE HCL [Concomitant]
     Active Substance: MECLIZINE HYDROCHLORIDE
  10. CALCIUM 500 + D3 [Concomitant]
  11. IBRANCE [Suspect]
     Active Substance: PALBOCICLIB
     Indication: BREAST CANCER
     Route: 048
     Dates: start: 20190222
  12. PREDNISONE. [Concomitant]
     Active Substance: PREDNISONE
  13. FASLODEX [Concomitant]
     Active Substance: FULVESTRANT
  14. GABAPENTIN. [Concomitant]
     Active Substance: GABAPENTIN
  15. FLONASE [Concomitant]
     Active Substance: FLUTICASONE PROPIONATE

REACTIONS (4)
  - Cough [None]
  - Nasopharyngitis [None]
  - Vertigo [None]
  - Dizziness [None]
